FAERS Safety Report 7125621-7 (Version None)
Quarter: 2010Q4

REPORT INFORMATION
  Report Type: 
  Country: None (occurrence: None)
  Receive Date: 20101129
  Receipt Date: 20081120
  Transmission Date: 20110411
  Serious: Yes (Death)
  Sender: FDA-Public Use
  Company Number: AU-ROCHE-741873

PATIENT
  Age: 45 Year
  Sex: Female

DRUGS (1)
  1. HERCEPTIN [Suspect]
     Dosage: RECEIVED ONLY 05 DOSES
     Route: 037

REACTIONS (1)
  - MALIGNANT NEOPLASM PROGRESSION [None]
